FAERS Safety Report 6957585-0 (Version None)
Quarter: 2010Q3

REPORT INFORMATION
  Report Type: 
  Country: None (occurrence: None)
  Receive Date: 20100817
  Receipt Date: 20091231
  Transmission Date: 20110219
  Serious: No
  Sender: FDA-Public Use
  Company Number: 20097687

PATIENT
  Sex: Female

DRUGS (1)
  1. LIORESAL [Suspect]
     Indication: MUSCLE SPASTICITY
     Dosage: DAILY, INTRATHECAL
     Route: 037

REACTIONS (8)
  - DIZZINESS [None]
  - HEADACHE [None]
  - HYPERTENSION [None]
  - INFECTION [None]
  - LETHARGY [None]
  - MUSCULAR WEAKNESS [None]
  - SOMNOLENCE [None]
  - VOMITING [None]
